FAERS Safety Report 7409597-0 (Version None)
Quarter: 2011Q1

REPORT INFORMATION
  Report Type: 
  Country: None (occurrence: None)
  Receive Date: 20110301
  Receipt Date: 20101027
  Transmission Date: 20110831
  Serious: Yes (Death)
  Sender: FDA-Public Use
  Company Number: RB-11783-2010

PATIENT
  Sex: Male

DRUGS (2)
  1. ALCOHOL (NONE) [Suspect]
     Indication: PRODUCT USED FOR UNKNOWN INDICATION
     Dosage: (ORAL)
     Route: 048
  2. SUBOXONE [Suspect]
     Indication: DRUG DEPENDENCE
     Dosage: (8 MG BID SUBLINGUAL)
     Route: 060
     Dates: start: 20100528, end: 20100530

REACTIONS (1)
  - ACCIDENTAL OVERDOSE [None]
